FAERS Safety Report 11879795 (Version 2)
Quarter: 2016Q1

REPORT INFORMATION
  Report Type: Report from Study
  Country: GR (occurrence: GR)
  Receive Date: 20151230
  Receipt Date: 20160121
  Transmission Date: 20160526
  Serious: Yes (Hospitalization)
  Sender: FDA-Public Use
  Company Number: GR-ABBVIE-15P-066-1481520-00

PATIENT
  Age: 17 Year
  Sex: Female
  Weight: 42 kg

DRUGS (14)
  1. MTX [Suspect]
     Active Substance: METHOTREXATE SODIUM
     Route: 048
     Dates: start: 20110528, end: 20150825
  2. IBUPROFEN. [Concomitant]
     Active Substance: IBUPROFEN
     Indication: JUVENILE IDIOPATHIC ARTHRITIS
     Dates: start: 20101210
  3. HUMIRA [Suspect]
     Active Substance: ADALIMUMAB
     Indication: JUVENILE IDIOPATHIC ARTHRITIS
     Route: 058
     Dates: start: 20110411, end: 20150825
  4. FOLIC ACID. [Concomitant]
     Active Substance: FOLIC ACID
     Indication: ADVERSE DRUG REACTION
  5. MTX [Suspect]
     Active Substance: METHOTREXATE SODIUM
     Indication: JUVENILE IDIOPATHIC ARTHRITIS
     Route: 048
     Dates: start: 20101210, end: 20110116
  6. PREDNISOLONE. [Concomitant]
     Active Substance: PREDNISOLONE
     Indication: JUVENILE IDIOPATHIC ARTHRITIS
     Dates: start: 20101210
  7. PREDNISOLONE. [Concomitant]
     Active Substance: PREDNISOLONE
     Dates: start: 20110415, end: 20110523
  8. MTX [Suspect]
     Active Substance: METHOTREXATE SODIUM
     Route: 048
     Dates: start: 20110411, end: 20110527
  9. PREDNISOLONE. [Concomitant]
     Active Substance: PREDNISOLONE
     Dates: start: 20110523
  10. MTX [Suspect]
     Active Substance: METHOTREXATE SODIUM
     Route: 048
     Dates: start: 20110117, end: 20110318
  11. PREDNISOLONE. [Concomitant]
     Active Substance: PREDNISOLONE
     Dosage: 5/2.5MG
     Dates: start: 20110217, end: 20110325
  12. MTX [Suspect]
     Active Substance: METHOTREXATE SODIUM
     Route: 048
     Dates: start: 20110319, end: 20110411
  13. PREDNISOLONE. [Concomitant]
     Active Substance: PREDNISOLONE
     Dates: start: 20101203, end: 20110217
  14. FOLIC ACID. [Concomitant]
     Active Substance: FOLIC ACID
     Indication: PROPHYLAXIS
     Dates: start: 20101210

REACTIONS (2)
  - Tonsillar hypertrophy [Recovered/Resolved]
  - Tonsillitis [Recovered/Resolved]

NARRATIVE: CASE EVENT DATE: 20150910
